FAERS Safety Report 4722435-X (Version None)
Quarter: 2005Q3

REPORT INFORMATION
  Report Type: 
  Country: None (occurrence: None)
  Receive Date: 20050722
  Receipt Date: 20050419
  Transmission Date: 20060218
  Serious: No
  Sender: FDA-Public Use
  Company Number: US-GLAXOSMITHKLINE-A0554817A

PATIENT
  Age: 67 Year
  Sex: Female

DRUGS (5)
  1. AVANDIA [Suspect]
     Dosage: 8MG PER DAY
     Route: 048
     Dates: start: 20050418
  2. LIPITOR [Concomitant]
  3. GLUCOTROL [Concomitant]
  4. HYZAAR [Concomitant]
  5. FORTAMET [Concomitant]

REACTIONS (1)
  - BLOOD GLUCOSE DECREASED [None]
